FAERS Safety Report 20973799 (Version 12)
Quarter: 2023Q1

REPORT INFORMATION
  Report Type: Spontaneous
  Country: CA (occurrence: CA)
  Receive Date: 20220617
  Receipt Date: 20230306
  Transmission Date: 20230418
  Serious: Yes (Other)
  Sender: FDA-Public Use
  Company Number: CA-PFIZER INC-202200839063

PATIENT
  Age: 24 Year
  Sex: Female

DRUGS (17)
  1. ABRILADA [Suspect]
     Active Substance: ADALIMUMAB-AFZB
     Indication: Crohn^s disease
     Dosage: 1 DF, 160 MG WEEK 0, 80 MG WEEK 2, 40 MG Q 2 WEEK AFTERWARDS
     Route: 058
     Dates: start: 20220524
  2. ABRILADA [Suspect]
     Active Substance: ADALIMUMAB-AFZB
     Dosage: 1 DF, 160 MG, WEEK 0 (THEN 80 MG WEEK 2, 40 MG EVERY 2 WEEKS AFTERWARDS)
     Route: 058
     Dates: start: 20220607
  3. ABRILADA [Suspect]
     Active Substance: ADALIMUMAB-AFZB
     Dosage: 1 DF, 160 MG, WEEK 0 (THEN 80 MG WEEK 2, 40 MG EVERY 2 WEEKS AFTERWARDS)
     Route: 058
     Dates: start: 20220824
  4. ABRILADA [Suspect]
     Active Substance: ADALIMUMAB-AFZB
     Dosage: 1 DF, 160 MG, WEEK 0 (THEN 80 MG WEEK 2, 40 MG EVERY 2 WEEKS AFTERWARDS)
     Route: 058
     Dates: start: 202210
  5. ABRILADA [Suspect]
     Active Substance: ADALIMUMAB-AFZB
     Dosage: 1 DF, RE-INDUCTION WEEK 0 160 MG, WEEK 2 80 MG, WEEK 4 40 MG
     Route: 058
     Dates: start: 20221223
  6. ABRILADA [Suspect]
     Active Substance: ADALIMUMAB-AFZB
     Dosage: 1 DF, RE-INDUCTION WEEK 0 160 MG, WEEK 2 80 MG, WEEK 4 40 MG
     Route: 058
     Dates: start: 20221223
  7. ABRILADA [Suspect]
     Active Substance: ADALIMUMAB-AFZB
     Dosage: 1 DF ,160 MG WEEK 0, 80 MG WEEK 2, 40 MG Q 2 WEEK AFTERWARDS. PREFILLED PEN
     Route: 058
     Dates: start: 20230105
  8. ABRILADA [Suspect]
     Active Substance: ADALIMUMAB-AFZB
     Dosage: 1 DF ,160 MG WEEK 0, 80 MG WEEK 2, 40 MG Q 2 WEEK AFTERWARDS. PREFILLED PEN
     Route: 058
     Dates: start: 20230120
  9. ABRILADA [Suspect]
     Active Substance: ADALIMUMAB-AFZB
     Dosage: 40 MG, WEEKLY (EVERY 1 WEEK)
     Route: 058
     Dates: start: 20230126
  10. ABRILADA [Suspect]
     Active Substance: ADALIMUMAB-AFZB
     Dosage: 40 MG, WEEKLY (EVERY 1 WEEK)
     Route: 058
     Dates: start: 20230131
  11. ABRILADA [Suspect]
     Active Substance: ADALIMUMAB-AFZB
     Dosage: 40 MG, WEEKLY (EVERY 1 WEEK)
     Route: 058
     Dates: start: 20230214
  12. ABRILADA [Suspect]
     Active Substance: ADALIMUMAB-AFZB
     Dosage: 40 MG, WEEKLY (EVERY 1 WEEK)
     Route: 058
     Dates: start: 20230220
  13. ABRILADA [Suspect]
     Active Substance: ADALIMUMAB-AFZB
     Dosage: 40 MG, WEEKLY, PER WEEK
     Route: 058
     Dates: start: 20230228
  14. CORTISONE [Concomitant]
     Active Substance: CORTISONE
     Dosage: UNK
  15. CORTISONE [Concomitant]
     Active Substance: CORTISONE
     Dosage: 25 MG, DAILY
  16. PREDNISONE [Concomitant]
     Active Substance: PREDNISONE
     Dosage: 1 DF
     Route: 065
  17. PREDNISONE [Concomitant]
     Active Substance: PREDNISONE
     Dosage: 1 DF, DOSAGE INFORMATION NOT AVAILABLE
     Route: 065

REACTIONS (14)
  - Tonsillectomy [Unknown]
  - Intestinal ulcer [Not Recovered/Not Resolved]
  - Condition aggravated [Not Recovered/Not Resolved]
  - Fatigue [Not Recovered/Not Resolved]
  - Off label use [Unknown]
  - Inappropriate schedule of product administration [Unknown]
  - Decreased appetite [Not Recovered/Not Resolved]
  - Treatment noncompliance [Unknown]
  - Abdominal pain upper [Unknown]
  - Nausea [Not Recovered/Not Resolved]
  - Infection [Not Recovered/Not Resolved]
  - Abdominal distension [Not Recovered/Not Resolved]
  - Vomiting [Not Recovered/Not Resolved]
  - Heart rate decreased [Not Recovered/Not Resolved]

NARRATIVE: CASE EVENT DATE: 20220101
